FAERS Safety Report 8348690-5 (Version None)
Quarter: 2012Q2

REPORT INFORMATION
  Report Type: 
  Country: None (occurrence: None)
  Receive Date: 20120510
  Receipt Date: 20120427
  Transmission Date: 20120825
  Serious: Yes (Hospitalization, Other)
  Sender: FDA-Public Use
  Company Number: US-ELI_LILLY_AND_COMPANY-US201012002180

PATIENT
  Sex: Female
  Weight: 62.132 kg

DRUGS (20)
  1. VITAMIN D [Concomitant]
  2. TOPRAL [Concomitant]
  3. HYDROCODONE BITARTRATE [Concomitant]
  4. LISINOPRIL [Concomitant]
  5. FORTEO [Suspect]
     Indication: OSTEOPOROSIS
     Dosage: 20 UG, DAILY (1/D)
     Route: 058
  6. SYNTHROID [Concomitant]
     Indication: THYROID DISORDER
  7. CALCIUM CARBONATE [Concomitant]
  8. NASONEX [Concomitant]
     Indication: SINUS DISORDER
  9. FORTEO [Suspect]
     Dosage: 20 UG, QD
     Route: 058
     Dates: start: 20120401
  10. MULTI-VITAMIN [Concomitant]
     Indication: DECREASED APPETITE
  11. AZATHIOPRINE [Concomitant]
     Indication: RHEUMATOID ARTHRITIS
  12. ENBREL [Concomitant]
  13. ACETYLSALICYLIC ACID SRT [Concomitant]
  14. CALCIUM [Concomitant]
  15. OSTEOFLEX [Concomitant]
  16. NORVASC [Concomitant]
  17. PROTON PUMP INHIBITORS [Concomitant]
  18. AMLODIPINE [Concomitant]
     Indication: BLOOD PRESSURE ABNORMAL
  19. EYE DROPS [Concomitant]
     Indication: GLAUCOMA
  20. ATENOLOL [Concomitant]
     Indication: BLOOD PRESSURE

REACTIONS (15)
  - MYOCARDIAL INFARCTION [None]
  - PELVIC FRACTURE [None]
  - FATIGUE [None]
  - DEPRESSION [None]
  - BLOOD PRESSURE INCREASED [None]
  - HEART RATE INCREASED [None]
  - DECREASED APPETITE [None]
  - FALL [None]
  - GLAUCOMA [None]
  - WEIGHT DECREASED [None]
  - RADIUS FRACTURE [None]
  - VASCULAR OCCLUSION [None]
  - SINUS DISORDER [None]
  - TENSION [None]
  - GAIT DISTURBANCE [None]
